FAERS Safety Report 13982108 (Version 2)
Quarter: 2017Q3

REPORT INFORMATION
  Report Type: Spontaneous
  Country: DK (occurrence: DK)
  Receive Date: 20170918
  Receipt Date: 20170926
  Transmission Date: 20171128
  Serious: Yes (Hospitalization)
  Sender: FDA-Public Use
  Company Number: DK-NOVOPROD-562776

PATIENT
  Sex: Male
  Weight: 4.1 kg

DRUGS (8)
  1. ELTROXIN [Concomitant]
     Active Substance: LEVOTHYROXINE
     Indication: MYXOEDEMA
     Dosage: UNK
  2. LANTUS [Suspect]
     Active Substance: INSULIN GLARGINE
     Dosage: 26 IU, QD
     Route: 064
     Dates: end: 20160428
  3. NOVORAPID [Suspect]
     Active Substance: INSULIN ASPART
     Dosage: UNK
     Route: 063
     Dates: start: 20160429, end: 201705
  4. LANTUS [Suspect]
     Active Substance: INSULIN GLARGINE
     Indication: FOETAL EXPOSURE TIMING UNSPECIFIED
     Dosage: 38 IU, QD
     Route: 064
     Dates: start: 20150820
  5. URSOFALK [Concomitant]
     Active Substance: URSODIOL
  6. FOLIC ACID. [Concomitant]
     Active Substance: FOLIC ACID
  7. LANTUS [Suspect]
     Active Substance: INSULIN GLARGINE
     Dosage: UNK
     Route: 063
     Dates: start: 20160429, end: 201705
  8. NOVORAPID [Suspect]
     Active Substance: INSULIN ASPART
     Indication: FOETAL EXPOSURE TIMING UNSPECIFIED
     Dosage: 12 IU, QD
     Route: 064
     Dates: start: 20150820, end: 20160428

REACTIONS (4)
  - Exposure during breast feeding [Unknown]
  - Foetal exposure during pregnancy [Unknown]
  - Hypoglycaemia neonatal [Recovered/Resolved]
  - Premature baby [Unknown]

NARRATIVE: CASE EVENT DATE: 20160428
